FAERS Safety Report 5557647-9 (Version None)
Quarter: 2007Q4

REPORT INFORMATION
  Report Type: 
  Country: None (occurrence: None)
  Receive Date: 20071214
  Receipt Date: 20071210
  Transmission Date: 20080405
  Serious: Yes (Hospitalization)
  Sender: FDA-Public Use
  Company Number: B0499777A

PATIENT
  Age: 23 Year
  Sex: Male

DRUGS (2)
  1. WELLBUTRIN [Suspect]
     Dosage: 300MG PER DAY
     Route: 065
  2. LENDORMIN [Concomitant]

REACTIONS (9)
  - ABNORMAL BEHAVIOUR [None]
  - AGITATION [None]
  - CONFUSIONAL STATE [None]
  - CONVULSION [None]
  - INCOHERENT [None]
  - PYREXIA [None]
  - SPEECH DISORDER [None]
  - TACHYCARDIA [None]
  - VOMITING [None]
